FAERS Safety Report 11878350 (Version 1)
Quarter: 2015Q4

REPORT INFORMATION
  Report Type: Spontaneous
  Country: US (occurrence: US)
  Receive Date: 20151230
  Receipt Date: 20151230
  Transmission Date: 20160305
  Serious: No
  Sender: FDA-Public Use
  Company Number: US-WATSON-2015-17418

PATIENT

DRUGS (1)
  1. DULOXETINE HYDROCHLORIDE (AELLC) [Suspect]
     Active Substance: DULOXETINE HYDROCHLORIDE
     Indication: PRODUCT USED FOR UNKNOWN INDICATION
     Dosage: UNK UNK, UNKNOWN
     Route: 065

REACTIONS (7)
  - Depressed mood [Unknown]
  - Unevaluable event [Unknown]
  - Asthenia [Unknown]
  - Drug effect incomplete [Unknown]
  - Product substitution issue [Unknown]
  - Anxiety [Unknown]
  - Restlessness [Unknown]
